FAERS Safety Report 7352069-2 (Version None)
Quarter: 2011Q1

REPORT INFORMATION
  Report Type: 
  Country: None (occurrence: None)
  Receive Date: 20110315
  Receipt Date: 20110311
  Transmission Date: 20110831
  Serious: No
  Sender: FDA-Public Use
  Company Number: US-PFIZER INC-2011054710

PATIENT
  Sex: Male

DRUGS (5)
  1. EFFEXOR XR [Suspect]
     Dosage: 75 MG, UNK
     Route: 048
  2. LIPITOR [Interacting]
     Indication: BLOOD CHOLESTEROL ABNORMAL
     Dosage: UNK
     Route: 048
  3. FISH OIL [Interacting]
     Dosage: UNK
  4. VITAMIN D [Interacting]
     Indication: VITAMIN D DEFICIENCY
     Dosage: UNK
     Route: 048
  5. NIACIN [Interacting]
     Indication: VITAMIN SUPPLEMENTATION
     Dosage: UNK

REACTIONS (3)
  - DRUG INTERACTION [None]
  - INSOMNIA [None]
  - DRUG EFFECT DECREASED [None]
